FAERS Safety Report 5952893-4 (Version None)
Quarter: 2008Q4

REPORT INFORMATION
  Report Type: 
  Country: None (occurrence: None)
  Receive Date: 20081114
  Receipt Date: 20081106
  Transmission Date: 20090506
  Serious: Yes (Other)
  Sender: FDA-Public Use
  Company Number: US-JNJFOC-20081101550

PATIENT
  Age: 56 Year
  Sex: Female

DRUGS (5)
  1. RISPERIDONE [Suspect]
     Indication: DRUG USE FOR UNKNOWN INDICATION
     Route: 030
  2. RISPERIDONE [Suspect]
     Indication: DRUG USE FOR UNKNOWN INDICATION
     Route: 048
  3. HALOPERIDOL [Suspect]
     Indication: AGITATION
     Route: 048
  4. ZYPREXA [Suspect]
     Indication: DRUG USE FOR UNKNOWN INDICATION
     Route: 065
  5. ATIVAN [Suspect]
     Indication: AGITATION
     Route: 030

REACTIONS (2)
  - CATATONIA [None]
  - NEUROLEPTIC MALIGNANT SYNDROME [None]
